FAERS Safety Report 5032557-4 (Version None)
Quarter: 2006Q2

REPORT INFORMATION
  Report Type: 
  Country: None (occurrence: None)
  Receive Date: 20060620
  Receipt Date: 20060602
  Transmission Date: 20061013
  Serious: Yes (Hospitalization)
  Sender: FDA-Public Use
  Company Number: 2006RR-02496

PATIENT
  Age: 44 Year
  Sex: Female

DRUGS (2)
  1. CIPROFLOXACIN [Suspect]
     Indication: PNEUMONIA ANTHRAX
     Dosage: 500 MG, BID, ORAL
     Route: 048
  2. DOXYCYCLINE [Suspect]
     Indication: PNEUMONIA ANTHRAX
     Dosage: 100 MG, BID, ORAL
     Route: 048

REACTIONS (7)
  - HYPERTENSIVE NEPHROPATHY [None]
  - NAUSEA [None]
  - NEPHRITIS INTERSTITIAL [None]
  - NEPHROPATHY TOXIC [None]
  - NEPHROSCLEROSIS [None]
  - RASH PRURITIC [None]
  - RENAL FAILURE ACUTE [None]
